FAERS Safety Report 5216168-3 (Version None)
Quarter: 2007Q1

REPORT INFORMATION
  Report Type: 
  Country: None (occurrence: None)
  Receive Date: 20070123
  Receipt Date: 20070115
  Transmission Date: 20070707
  Serious: Yes (Other)
  Sender: FDA-Public Use
  Company Number: FR-PFIZER INC-2006123412

PATIENT
  Sex: Male
  Weight: 82 kg

DRUGS (1)
  1. VIAGRA [Suspect]
     Indication: PROSTATECTOMY
     Route: 048
     Dates: start: 20050701, end: 20060701

REACTIONS (1)
  - OPTIC ISCHAEMIC NEUROPATHY [None]
